FAERS Safety Report 9363875 (Version 1)
Quarter: 2013Q2

REPORT INFORMATION
  Report Type: Spontaneous
  Country: JP (occurrence: None)
  Receive Date: 20130618
  Receipt Date: 20130618
  Transmission Date: 20140414
  Serious: Yes (Hospitalization)
  Sender: FDA-Public Use
  Company Number: IMP_06720_2013

PATIENT
  Age: 78 Year
  Sex: Male

DRUGS (1)
  1. MINOCYCLINE (MINOCYCLINE) [Suspect]
     Indication: PNEUMONITIS
     Dosage: 3 WEEKS 1 DAY UNTIL NOT CONTINUING

REACTIONS (1)
  - Drug reaction with eosinophilia and systemic symptoms [None]
